FAERS Safety Report 10356397 (Version 1)
Quarter: 2014Q3

REPORT INFORMATION
  Report Type: Spontaneous
  Country: US (occurrence: None)
  Receive Date: 20140730
  Receipt Date: 20140730
  Transmission Date: 20150326
  Serious: Yes (Hospitalization)
  Sender: FDA-Public Use
  Company Number: None

PATIENT
  Age: 57 Year
  Sex: Male

DRUGS (1)
  1. RIBASPHERE RIBAPAK [Suspect]
     Active Substance: RIBAVIRIN
     Dosage: 400 MG BID PO UNKNOWN, OUR 1ST FILL WAS 5-30-14
     Route: 048
     Dates: start: 20140530

REACTIONS (1)
  - Renal disorder [None]

NARRATIVE: CASE EVENT DATE: 201407
